FAERS Safety Report 17961054 (Version 2)
Quarter: 2020Q3

REPORT INFORMATION
  Report Type: Report from Study
  Country: None (occurrence: TW)
  Receive Date: 20200629
  Receipt Date: 20200709
  Transmission Date: 20201103
  Serious: No
  Sender: FDA-Public Use
  Company Number: TW-ABBVIE-20K-153-3464142-00

PATIENT
  Age: 69 Year
  Sex: Male
  Weight: 67.6 kg

DRUGS (1)
  1. IBRUTINIB [Suspect]
     Active Substance: IBRUTINIB
     Indication: MANTLE CELL LYMPHOMA REFRACTORY
     Route: 048
     Dates: start: 20190509

REACTIONS (5)
  - Depression [Not Recovered/Not Resolved]
  - Tooth extraction [Recovered/Resolved]
  - Fatigue [Not Recovered/Not Resolved]
  - Anxiety [Recovered/Resolved]
  - Gout [Not Recovered/Not Resolved]

NARRATIVE: CASE EVENT DATE: 20190826
